APPROVED DRUG PRODUCT: R-GENE 10
Active Ingredient: ARGININE HYDROCHLORIDE
Strength: 10GM/100ML
Dosage Form/Route: INJECTABLE;INJECTION
Application: N016931 | Product #001
Applicant: PHARMACIA AND UPJOHN CO
Approved: Approved Prior to Jan 1, 1982 | RLD: Yes | RS: Yes | Type: RX